FAERS Safety Report 23148246 (Version 1)
Quarter: 2023Q4

REPORT INFORMATION
  Report Type: Spontaneous
  Country: US (occurrence: None)
  Receive Date: 20231106
  Receipt Date: 20231106
  Transmission Date: 20240109
  Serious: No
  Sender: FDA-Public Use
  Company Number: 2023A251284

PATIENT
  Age: 56 Year
  Sex: Male

DRUGS (1)
  1. BYDUREON BCISE [Suspect]
     Active Substance: EXENATIDE
     Dates: start: 202303

REACTIONS (2)
  - Injury associated with device [Unknown]
  - Needle issue [Unknown]

NARRATIVE: CASE EVENT DATE: 20231004
